FAERS Safety Report 5845476-8 (Version None)
Quarter: 2008Q3

REPORT INFORMATION
  Report Type: 
  Country: None (occurrence: None)
  Receive Date: 20080731
  Receipt Date: 20080527
  Transmission Date: 20090109
  Serious: No
  Sender: FDA-Public Use
  Company Number: US200805000374

PATIENT
  Age: 78 Year
  Sex: Female
  Weight: 77.1 kg

DRUGS (9)
  1. BYETTA [Suspect]
     Indication: TYPE 2 DIABETES MELLITUS
     Dosage: 5 UG, 2/D, SUBCUTANEOUS
     Route: 058
     Dates: start: 20080101, end: 20080101
  2. ACTOS [Concomitant]
  3. TEMAZEPAM [Concomitant]
  4. TYLENOL W/ CODEINE [Concomitant]
  5. ATENOLOL [Concomitant]
  6. NIASPAN [Concomitant]
  7. ASPIRIN [Concomitant]
  8. ZANTAC [Concomitant]
  9. LEVOTHYROXINE SODIUM [Concomitant]

REACTIONS (5)
  - ASTHENIA [None]
  - FAECAL INCONTINENCE [None]
  - NAUSEA [None]
  - NECK PAIN [None]
  - NERVE COMPRESSION [None]
